FAERS Safety Report 20980002 (Version 1)
Quarter: 2022Q2

REPORT INFORMATION
  Report Type: Spontaneous
  Country: JP (occurrence: JP)
  Receive Date: 20220620
  Receipt Date: 20220620
  Transmission Date: 20220721
  Serious: Yes (Hospitalization, Other)
  Sender: FDA-Public Use
  Company Number: JP-GRANULES-JP-2022GRALIT00145

PATIENT
  Age: 4 Day
  Sex: Female

DRUGS (2)
  1. ACETAMINOPHEN [Suspect]
     Active Substance: ACETAMINOPHEN
     Indication: Pain management
     Route: 065
  2. FENTANYL [Concomitant]
     Active Substance: FENTANYL
     Route: 065

REACTIONS (1)
  - Hyperbilirubinaemia [Recovering/Resolving]
